FAERS Safety Report 13875423 (Version 1)
Quarter: 2017Q3

REPORT INFORMATION
  Report Type: Report from Study
  Country: None (occurrence: US)
  Receive Date: 20170817
  Receipt Date: 20170817
  Transmission Date: 20171127
  Serious: Yes (Hospitalization, Other)
  Sender: FDA-Public Use
  Company Number: US-ABBVIE-17K-163-1983737-00

PATIENT
  Age: 36 Year
  Sex: Female

DRUGS (3)
  1. NEXIUM [Concomitant]
     Active Substance: ESOMEPRAZOLE MAGNESIUM
     Indication: PRODUCT USED FOR UNKNOWN INDICATION
  2. HUMIRA [Suspect]
     Active Substance: ADALIMUMAB
     Indication: CROHN^S DISEASE
     Route: 058
     Dates: start: 20170421, end: 20170622
  3. HUMIRA [Suspect]
     Active Substance: ADALIMUMAB
     Route: 058
     Dates: start: 20170731

REACTIONS (8)
  - Crohn^s disease [Not Recovered/Not Resolved]
  - Adenoidectomy [Recovered/Resolved]
  - Procedural pain [Recovered/Resolved]
  - Oropharyngeal pain [Recovering/Resolving]
  - Product storage error [Unknown]
  - Tonsillar inflammation [Recovered/Resolved]
  - Dysphagia [Recovering/Resolving]
  - Drug administration error [Unknown]

NARRATIVE: CASE EVENT DATE: 2017
